FAERS Safety Report 9920356 (Version 3)
Quarter: 2014Q2

REPORT INFORMATION
  Report Type: Spontaneous
  Country: BR (occurrence: BR)
  Receive Date: 20140224
  Receipt Date: 20140508
  Transmission Date: 20141212
  Serious: Yes (Hospitalization, Other)
  Sender: FDA-Public Use
  Company Number: BR-ASTRAZENECA-2014SE10828

PATIENT
  Age: 56 Year
  Sex: Male

DRUGS (6)
  1. ONGLYZA [Suspect]
     Indication: DIABETES MELLITUS
     Route: 048
     Dates: start: 201306
  2. BRILINTA [Suspect]
     Indication: ACUTE CORONARY SYNDROME
     Route: 048
     Dates: start: 20131018
  3. ACETYLSALICYLIC ACID [Suspect]
     Indication: ACUTE CORONARY SYNDROME
     Route: 048
     Dates: start: 20131018
  4. GLIFAGE XR (NON AZ PRODUCT) [Suspect]
     Indication: DIABETES MELLITUS
     Route: 048
     Dates: start: 2011
  5. LIPITOR [Concomitant]
     Indication: HYPERCHOLESTEROLAEMIA
     Route: 048
  6. INDAPEN [Concomitant]
     Indication: HYPERTENSION
     Route: 048

REACTIONS (5)
  - Apnoea [Recovered/Resolved]
  - Acute coronary syndrome [Recovered/Resolved]
  - Tooth erosion [Recovered/Resolved]
  - Ecchymosis [Recovered/Resolved]
  - Gingival bleeding [Recovered/Resolved]
